FAERS Safety Report 5068244-6 (Version None)
Quarter: 2006Q3

REPORT INFORMATION
  Report Type: 
  Country: None (occurrence: None)
  Receive Date: 20060802
  Receipt Date: 20050620
  Transmission Date: 20061208
  Serious: No
  Sender: FDA-Public Use
  Company Number: US-BRISTOL-MYERS SQUIBB COMPANY-13008776

PATIENT
  Age: 60 Year
  Sex: Female
  Weight: 45 kg

DRUGS (3)
  1. COUMADIN [Suspect]
     Indication: MITRAL VALVE REPLACEMENT
     Dates: start: 20050501
  2. SYNTHROID [Concomitant]
  3. TOPROL-XL [Concomitant]

REACTIONS (1)
  - PROTHROMBIN TIME ABNORMAL [None]
